FAERS Safety Report 17940179 (Version 1)
Quarter: 2020Q2

REPORT INFORMATION
  Report Type: Spontaneous
  Country: GB (occurrence: GB)
  Receive Date: 20200625
  Receipt Date: 20200625
  Transmission Date: 20200714
  Serious: Yes (Life-Threatening, Hospitalization)
  Sender: FDA-Public Use
  Company Number: GB-SA-2020SA157577

PATIENT

DRUGS (3)
  1. CLOPIDOGREL BISULFATE. [Concomitant]
     Active Substance: CLOPIDOGREL BISULFATE
     Dosage: 75 MG
     Route: 065
  2. ENOXAPARIN SODIUM. [Suspect]
     Active Substance: ENOXAPARIN SODIUM
     Indication: CARDIAC DISORDER
     Dosage: 1 MG/KG, BID
     Route: 065
  3. ASPIRINE [Concomitant]
     Active Substance: ASPIRIN
     Dosage: 75 MG
     Route: 065

REACTIONS (14)
  - Tachycardia [Recovered/Resolved]
  - Haemoglobin decreased [Recovered/Resolved]
  - Condition aggravated [Recovered/Resolved]
  - Acidosis [Recovered/Resolved]
  - Abdominal wall haematoma [Recovered/Resolved]
  - Abdominal tenderness [Recovered/Resolved]
  - White blood cell count increased [Recovered/Resolved]
  - Abdominal pain [Recovered/Resolved]
  - Abdominal rigidity [Recovered/Resolved]
  - Anaemia [Recovering/Resolving]
  - Abdominal distension [Recovered/Resolved]
  - Intra-abdominal pressure increased [Recovered/Resolved]
  - Oliguria [Recovered/Resolved]
  - Abdominal wall oedema [Recovered/Resolved]
